FAERS Safety Report 18883785 (Version 5)
Quarter: 2021Q1

REPORT INFORMATION
  Report Type: Report from Study
  Country: US (occurrence: US)
  Receive Date: 20210212
  Receipt Date: 20210327
  Transmission Date: 20210420
  Serious: Yes (Other)
  Sender: FDA-Public Use
  Company Number: NVSC2021US029458

PATIENT
  Sex: Male

DRUGS (1)
  1. ENTRESTO [Suspect]
     Active Substance: SACUBITRIL\VALSARTAN
     Indication: PRODUCT USED FOR UNKNOWN INDICATION
     Dosage: 50 MG, BID (26/24 MG)
     Route: 048

REACTIONS (5)
  - Chronic kidney disease [Unknown]
  - Mouth haemorrhage [Unknown]
  - Dehydration [Unknown]
  - Cough [Recovering/Resolving]
  - Hypotension [Unknown]
